FAERS Safety Report 8312220-4 (Version None)
Quarter: 2012Q2

REPORT INFORMATION
  Report Type: 
  Country: None (occurrence: None)
  Receive Date: 20120425
  Receipt Date: 20120412
  Transmission Date: 20120825
  Serious: Yes (Other)
  Sender: FDA-Public Use
  Company Number: CHPA2012US009253

PATIENT
  Age: 71 Year
  Sex: Female

DRUGS (2)
  1. DRUG THERAPY NOS [Concomitant]
  2. BENEFIBER W/ WHEAT DEXTRIN [Suspect]
     Indication: SUPPLEMENTATION THERAPY
     Dosage: UNK, UNK
     Route: 048
     Dates: start: 20110101

REACTIONS (1)
  - RENAL FAILURE CHRONIC [None]
